FAERS Safety Report 8920729 (Version 2)
Quarter: 2012Q4

REPORT INFORMATION
  Report Type: Report from Study
  Country: US (occurrence: US)
  Receive Date: 20121121
  Receipt Date: 20121205
  Transmission Date: 20130627
  Serious: Yes (Hospitalization)
  Sender: FDA-Public Use
  Company Number: US-ROCHE-1153622

PATIENT
  Age: 57 Year
  Sex: Female

DRUGS (14)
  1. ADO-TRASTUZUMAB EMTANSINE [Suspect]
     Indication: BREAST CANCER
     Dosage: last dose was taken on 05/Nov/2012
     Route: 042
     Dates: start: 20110622
  2. PERTUZUMAB [Suspect]
     Indication: BREAST CANCER
     Dosage: last dose taken 05/Nov/2012
     Route: 042
     Dates: start: 20110622
  3. FISH OIL [Concomitant]
     Route: 065
     Dates: start: 2007
  4. MAGNESIUM [Concomitant]
     Route: 065
     Dates: start: 2003
  5. MELATONIN [Concomitant]
     Route: 065
     Dates: start: 2007
  6. MUCINEX [Concomitant]
     Indication: COUGH
     Route: 065
     Dates: start: 20100809
  7. ALPHA LIPOIC ACID [Concomitant]
     Indication: NEUROPATHY PERIPHERAL
     Route: 065
     Dates: start: 20110420
  8. RESTASIS [Concomitant]
     Indication: LACRIMATION INCREASED
     Route: 065
     Dates: start: 20110601
  9. SYSTANE [Concomitant]
     Indication: LACRIMATION INCREASED
     Route: 065
     Dates: start: 20110601
  10. FAMOTIDINE [Concomitant]
     Indication: GASTROOESOPHAGEAL REFLUX DISEASE
  11. LORAZEPAM [Concomitant]
     Indication: MOOD SWINGS
     Route: 065
     Dates: start: 20111019
  12. CITALOPRAM [Concomitant]
     Indication: MOOD SWINGS
     Route: 065
     Dates: start: 201111
  13. CLINDAMYCIN [Concomitant]
     Indication: ORAL INFECTION
     Route: 065
     Dates: start: 20111222
  14. BACTRIM [Concomitant]
     Indication: URINARY TRACT INFECTION
     Route: 065
     Dates: start: 20120612, end: 201206

REACTIONS (1)
  - Cellulitis [Recovered/Resolved]
